FAERS Safety Report 7018404-X (Version None)
Quarter: 2010Q3

REPORT INFORMATION
  Report Type: 
  Country: None (occurrence: None)
  Receive Date: 20100928
  Receipt Date: 20100920
  Transmission Date: 20110219
  Serious: Yes (Other)
  Sender: FDA-Public Use
  Company Number: PHHY2010DE62597

PATIENT
  Age: 38 Year
  Sex: Female

DRUGS (1)
  1. RITALIN [Suspect]
     Dosage: 7.5 MG, BID

REACTIONS (5)
  - DELUSION [None]
  - DEPRESSED MOOD [None]
  - HALLUCINATION, OLFACTORY [None]
  - OVERDOSE [None]
  - PARANOIA [None]
